FAERS Safety Report 26157391 (Version 1)
Quarter: 2025Q4

REPORT INFORMATION
  Report Type: Spontaneous
  Country: US (occurrence: US)
  Receive Date: 20251215
  Receipt Date: 20251215
  Transmission Date: 20260118
  Serious: Yes (Other)
  Sender: MYLAN
  Company Number: US-MYLANLABS-2025M1104145

PATIENT
  Age: 71 Year
  Sex: Female

DRUGS (8)
  1. METHIMAZOLE [Suspect]
     Active Substance: METHIMAZOLE
     Indication: Hyperthyroidism
     Dosage: 10 MILLIGRAM
  2. METHIMAZOLE [Suspect]
     Active Substance: METHIMAZOLE
     Dosage: 10 MILLIGRAM
  3. METHIMAZOLE [Suspect]
     Active Substance: METHIMAZOLE
     Dosage: 10 MILLIGRAM
     Route: 065
  4. METHIMAZOLE [Suspect]
     Active Substance: METHIMAZOLE
     Dosage: 10 MILLIGRAM
     Route: 065
  5. METHIMAZOLE [Suspect]
     Active Substance: METHIMAZOLE
     Dosage: 7.5 MILLIGRAM (DOSE REDUCED)
  6. METHIMAZOLE [Suspect]
     Active Substance: METHIMAZOLE
     Dosage: 7.5 MILLIGRAM (DOSE REDUCED)
  7. METHIMAZOLE [Suspect]
     Active Substance: METHIMAZOLE
     Dosage: 7.5 MILLIGRAM (DOSE REDUCED)
     Route: 065
  8. METHIMAZOLE [Suspect]
     Active Substance: METHIMAZOLE
     Dosage: 7.5 MILLIGRAM (DOSE REDUCED)
     Route: 065

REACTIONS (4)
  - Eosinophilic pleural effusion [Recovering/Resolving]
  - Pleural effusion [Recovering/Resolving]
  - Interstitial lung disease [Recovering/Resolving]
  - Chronic obstructive pulmonary disease [Recovering/Resolving]
